FAERS Safety Report 9902921 (Version 1)
Quarter: 2014Q1

REPORT INFORMATION
  Report Type: Report from Study
  Country: FR (occurrence: FR)
  Receive Date: 20140217
  Receipt Date: 20140217
  Transmission Date: 20141002
  Serious: Yes (Hospitalization)
  Sender: FDA-Public Use
  Company Number: PHHO2014FR002210

PATIENT
  Sex: 0

DRUGS (10)
  1. PROGRAF [Suspect]
     Indication: LIVER TRANSPLANT
     Dosage: 3 MG, BID
     Route: 048
     Dates: start: 20140120
  2. MYFORTIC [Suspect]
     Indication: LIVER TRANSPLANT
     Dosage: 720 MG, BID
     Route: 048
     Dates: start: 20140120
  3. SIMULECT [Suspect]
     Indication: LIVER TRANSPLANT
     Dosage: 20 MG, UNK
     Dates: start: 20140115, end: 20140115
  4. SIMULECT [Suspect]
     Dosage: 20 MG, UNK
     Dates: start: 20140119, end: 20140119
  5. CORTANCYL [Concomitant]
     Indication: IMMUNOSUPPRESSION
     Dosage: 16 MG, QD
     Route: 048
     Dates: start: 20140115
  6. INEXIUM//ESOMEPRAZOLE MAGNESIUM [Concomitant]
     Indication: PROPHYLAXIS AGAINST GASTROINTESTINAL ULCER
     Dosage: 40 MG, QD
     Dates: start: 20140120
  7. BACTRIN [Concomitant]
     Indication: ANTIFUNGAL PROPHYLAXIS
     Dosage: 480 MG, QD
     Route: 048
     Dates: start: 20140120
  8. ASPEGIC//ACETYLSALICYLATE LYSINE [Concomitant]
     Indication: THROMBOSIS PROPHYLAXIS
     Dosage: 250 MG, QD
     Route: 048
     Dates: start: 20140129
  9. INSULIN [Concomitant]
     Indication: HYPERGLYCAEMIA
     Dosage: 20 IU, QD
     Route: 058
     Dates: start: 20140115
  10. TENORMINE [Concomitant]
     Indication: HYPERTENSION
     Dosage: 25 MG, QD
     Route: 048
     Dates: start: 20140108

REACTIONS (1)
  - Musculoskeletal pain [Not Recovered/Not Resolved]
